FAERS Safety Report 26206796 (Version 1)
Quarter: 2025Q4

REPORT INFORMATION
  Report Type: Spontaneous
  Country: EG (occurrence: EG)
  Receive Date: 20251229
  Receipt Date: 20251229
  Transmission Date: 20260119
  Serious: Yes (Other)
  Sender: Haleon PLC
  Company Number: EG-002147023-NVSC2025EG196595

PATIENT

DRUGS (1)
  1. VOLTAREN [Suspect]
     Active Substance: DICLOFENAC SODIUM
     Indication: Product used for unknown indication
     Dosage: UNK

REACTIONS (4)
  - Renal impairment [Unknown]
  - Fluid retention [Unknown]
  - Blood creatinine increased [Unknown]
  - Swelling [Unknown]
